FAERS Safety Report 8918034 (Version 1)
Quarter: 2012Q4

REPORT INFORMATION
  Report Type: 
  Country: US (occurrence: US)
  Receive Date: 20121120
  Receipt Date: 20121120
  Transmission Date: 20130627
  Serious: Yes (Other)
  Sender: FDA-Public Use
  Company Number: US-US-EMD SERONO, INC.-7159949

PATIENT
  Sex: Female

DRUGS (1)
  1. REBIF [Suspect]
     Indication: MULTIPLE SCLEROSIS
     Route: 058
     Dates: start: 20080317

REACTIONS (4)
  - Night blindness [Not Recovered/Not Resolved]
  - Bursitis [Not Recovered/Not Resolved]
  - Fear of falling [Not Recovered/Not Resolved]
  - Injection site bruising [Not Recovered/Not Resolved]
